FAERS Safety Report 25323984 (Version 3)
Quarter: 2025Q2

REPORT INFORMATION
  Report Type: Report from Study
  Country: CA (occurrence: CA)
  Receive Date: 20250516
  Receipt Date: 20250619
  Transmission Date: 20250716
  Serious: Yes (Hospitalization)
  Sender: SAMSUNG BIOEPIS
  Company Number: CA-SAMSUNG BIOEPIS-SB-2025-17048

PATIENT
  Age: 0 Year
  Sex: Male
  Weight: 3.26 kg

DRUGS (5)
  1. RENFLEXIS [Suspect]
     Active Substance: INFLIXIMAB-ABDA
     Indication: Ankylosing spondylitis
     Dosage: PRODUCT RECEIVED BY MOTHER;
     Dates: start: 20230615
  2. RENFLEXIS [Suspect]
     Active Substance: INFLIXIMAB-ABDA
     Dosage: PRODUCT RECEIVED BY MOTHER;
     Dates: start: 20230311
  3. RENFLEXIS [Suspect]
     Active Substance: INFLIXIMAB-ABDA
     Dosage: PRODUCT RECEIVED BY MOTHER;
     Dates: start: 20231103
  4. METHOTREXATE [Concomitant]
     Active Substance: METHOTREXATE
     Indication: Product used for unknown indication
  5. CELEBREX [Concomitant]
     Active Substance: CELECOXIB
     Indication: Product used for unknown indication

REACTIONS (2)
  - Jaundice neonatal [Unknown]
  - Neonatal asphyxia [Unknown]

NARRATIVE: CASE EVENT DATE: 20250503
